FAERS Safety Report 7729780-4 (Version None)
Quarter: 2011Q3

REPORT INFORMATION
  Report Type: 
  Country: None (occurrence: None)
  Receive Date: 20110906
  Receipt Date: 20110826
  Transmission Date: 20111222
  Serious: Yes (Hospitalization)
  Sender: FDA-Public Use
  Company Number: JP-SHIRE-ALL1-2011-03111

PATIENT
  Age: 61 Year
  Sex: Male

DRUGS (26)
  1. OXAROL [Concomitant]
     Dosage: 15 ?G, UNKNOWN
     Route: 041
     Dates: start: 20100608, end: 20100705
  2. AMLODIPINE [Concomitant]
     Dosage: 20 MG/WEEK(ON DIALYSIS ), 1X/WEEK
     Route: 048
  3. EPOGIN [Concomitant]
     Indication: PRODUCT USED FOR UNKNOWN INDICATION
     Dosage: 3000 IU, UNKNOWN
     Route: 042
  4. ANTEBATE [Concomitant]
     Indication: PRODUCT USED FOR UNKNOWN INDICATION
     Dosage: UNK, UNKNOWN
     Route: 061
  5. KETOPROFEN [Concomitant]
     Indication: PRODUCT USED FOR UNKNOWN INDICATION
     Dosage: UNK, UNKNOWN
     Route: 061
  6. CINACALCET HYDROCHLORIDE [Suspect]
     Dosage: 12.5 MG, UNKNOWN
     Route: 048
     Dates: start: 20101018, end: 20110218
  7. ALUMIGEL                           /00057401/ [Concomitant]
     Indication: HYPERPHOSPHATAEMIA
     Dosage: 2 G, UNKNOWN
     Route: 048
     Dates: start: 20110510
  8. OXAROL [Concomitant]
     Dosage: 30 ?G, UNKNOWN
     Dates: start: 20100514, end: 20100604
  9. COMBEC [Concomitant]
     Indication: PRODUCT USED FOR UNKNOWN INDICATION
     Dosage: UNK, UNKNOWN
     Route: 061
  10. FOSRENOL [Suspect]
     Indication: HYPERPHOSPHATAEMIA
     Dosage: 250 MG(TOTAL DAILY DOSE OF 250 MG IMMEDIATELY AFTER MEALS), 1X/DAY:QD
     Route: 048
     Dates: start: 20100511, end: 20110108
  11. OXAROL [Concomitant]
     Dosage: 20 ?G, UNKNOWN
     Route: 041
     Dates: start: 20100708
  12. AMLODIPINE [Concomitant]
     Indication: PRODUCT USED FOR UNKNOWN INDICATION
     Dosage: 7.5 MG/WEEK (ON DIALYSIS DAY), 1X/WEEK
     Route: 048
  13. OXAROL [Concomitant]
     Dosage: 20 ?G, UNK
     Route: 041
     Dates: start: 20101209, end: 20110322
  14. OLOPATADINE HCL [Concomitant]
     Indication: PRODUCT USED FOR UNKNOWN INDICATION
     Dosage: 5 MG, UNKNOWN
     Route: 048
  15. RENAGEL [Concomitant]
     Indication: HYPERPHOSPHATAEMIA
     Dosage: 3500 MG, UNKNOWN
     Route: 048
     Dates: end: 20110510
  16. METHYCOBAL [Concomitant]
     Indication: PRODUCT USED FOR UNKNOWN INDICATION
     Dosage: 1.5 MG, UNKNOWN
     Route: 048
  17. FOSRENOL [Suspect]
     Dosage: 250 MG, 1X/DAY:QD
     Route: 048
     Dates: start: 20110123, end: 20110218
  18. CINACALCET HYDROCHLORIDE [Suspect]
     Indication: HYPERPARATHYROIDISM SECONDARY
     Dosage: 25 MG, UNKNOWN
     Route: 065
     Dates: start: 20100525, end: 20101017
  19. OXAROL [Concomitant]
     Indication: PRODUCT USED FOR UNKNOWN INDICATION
     Dosage: 20 ?G, 1X/WEEK
     Route: 041
     Dates: start: 20100309, end: 20100512
  20. OXAROL [Concomitant]
     Dosage: 15 ?G, UNKNOWN
     Route: 041
     Dates: start: 20110325
  21. BISOPROLOL FUMARATE [Concomitant]
     Indication: PRODUCT USED FOR UNKNOWN INDICATION
     Dosage: 2.5 MG, UNKNOWN
     Route: 048
  22. SELBEX [Concomitant]
     Indication: PRODUCT USED FOR UNKNOWN INDICATION
     Dosage: 150 MG, UNKNOWN
     Route: 048
  23. MUCOSTA [Concomitant]
     Indication: PRODUCT USED FOR UNKNOWN INDICATION
     Dosage: 300 MG, UNKNOWN
     Route: 048
  24. REMITCH [Concomitant]
     Indication: PRODUCT USED FOR UNKNOWN INDICATION
     Dosage: 2.5 ?G, UNKNOWN
     Route: 048
  25. LOXONIN [Suspect]
     Indication: TOOTHACHE
     Dosage: UNK, UNKNOWN
     Route: 048
     Dates: start: 20101229
  26. OXAROL [Concomitant]
     Dosage: 12.5 ?G, UNKNOWN
     Route: 041
     Dates: start: 20101112, end: 20101206

REACTIONS (1)
  - GASTRIC ULCER [None]
